FAERS Safety Report 6269990-9 (Version None)
Quarter: 2009Q3

REPORT INFORMATION
  Report Type: 
  Country: None (occurrence: None)
  Receive Date: 20090716
  Receipt Date: 20090707
  Transmission Date: 20100115
  Serious: Yes (Other)
  Sender: FDA-Public Use
  Company Number: NO-JNJFOC-20090702587

PATIENT
  Age: 20 Year
  Sex: Male

DRUGS (6)
  1. REMICADE [Suspect]
     Indication: PSORIASIS
     Route: 042
  2. CYCLOSPORINE [Suspect]
     Indication: PSORIASIS
  3. EFALIZUMAB [Suspect]
     Indication: PSORIASIS
  4. ETANERCEPT [Suspect]
     Indication: PSORIASIS
  5. METHOTREXATE [Concomitant]
  6. ACITRETIN [Concomitant]

REACTIONS (1)
  - EWING'S SARCOMA [None]
